FAERS Safety Report 26151752 (Version 1)
Quarter: 2025Q4

REPORT INFORMATION
  Report Type: Spontaneous
  Country: US (occurrence: US)
  Receive Date: 20251214
  Receipt Date: 20251214
  Transmission Date: 20260118
  Serious: No
  Sender: INCYTE
  Company Number: US-EVENT-005132

PATIENT
  Age: 16 Year

DRUGS (3)
  1. PEMAZYRE [Suspect]
     Active Substance: PEMIGATINIB
     Indication: Brain neoplasm
     Dosage: 13.5 MILLIGRAM
     Route: 065
  2. PEMAZYRE [Suspect]
     Active Substance: PEMIGATINIB
     Dosage: 9 MILLIGRAM
     Route: 065
  3. PEMAZYRE [Suspect]
     Active Substance: PEMIGATINIB
     Dosage: 4.5 MILLIGRAM, (TAKE ONE TABLET BY MOUTH DAILY FOR 14 DAYS ON, 7 DAYS OFF, INDEFINITELY)
     Route: 061

REACTIONS (13)
  - Alopecia [Unknown]
  - Nail disorder [Unknown]
  - Nausea [Unknown]
  - Decreased appetite [Unknown]
  - Weight decreased [Unknown]
  - Arthralgia [Unknown]
  - Myalgia [Unknown]
  - Fatigue [Unknown]
  - Nightmare [Unknown]
  - Dry skin [Unknown]
  - Sensitive skin [Unknown]
  - Blood phosphorus increased [Recovered/Resolved]
  - Off label use [Unknown]
